FAERS Safety Report 4490834-X (Version None)
Quarter: 2004Q4

REPORT INFORMATION
  Report Type: 
  Country: None (occurrence: None)
  Receive Date: 20041027
  Receipt Date: 20041020
  Transmission Date: 20050328
  Serious: Yes (Death, Hospitalization)
  Sender: FDA-Public Use
  Company Number: 2004CG02128

PATIENT
  Age: 47 Year
  Sex: Male
  Weight: 65 kg

DRUGS (8)
  1. IRESSA [Suspect]
     Indication: LUNG NEOPLASM MALIGNANT
     Dosage: 250 MG QD PO
     Route: 048
     Dates: start: 20040716
  2. NORVIR [Suspect]
     Dates: start: 19980630
  3. CRIXIVAN [Suspect]
     Dates: start: 19980630
  4. COMBIVIR [Suspect]
     Dates: start: 19980630
  5. CARBOPLATINE [Concomitant]
  6. TAXOL [Concomitant]
  7. NAVELBINE [Concomitant]
  8. GEMZAR [Concomitant]

REACTIONS (4)
  - CARDIAC ARREST [None]
  - LUNG NEOPLASM [None]
  - PNEUMOCYSTIS CARINII PNEUMONIA [None]
  - RESPIRATORY DISORDER [None]
